FAERS Safety Report 7358313-X (Version None)
Quarter: 2011Q1

REPORT INFORMATION
  Report Type: 
  Country: None (occurrence: None)
  Receive Date: 20110307
  Receipt Date: 20100301
  Transmission Date: 20110831
  Serious: No
  Sender: FDA-Public Use
  Company Number: AEUSA201000067

PATIENT
  Age: 49 Year
  Sex: Male

DRUGS (1)
  1. PROLASTIN [Suspect]
     Dosage: TOP
     Route: 061

REACTIONS (2)
  - INJURY ASSOCIATED WITH DEVICE [None]
  - MEDICATION ERROR [None]
